FAERS Safety Report 24769500 (Version 1)
Quarter: 2024Q4

REPORT INFORMATION
  Report Type: Spontaneous
  Country: BR (occurrence: BR)
  Receive Date: 20241224
  Receipt Date: 20241224
  Transmission Date: 20250115
  Serious: Yes (Death, Hospitalization, Other)
  Sender: AUROBINDO
  Company Number: BR-AUROBINDO-AUR-APL-2024-062318

PATIENT
  Age: 73 Year
  Sex: Female

DRUGS (4)
  1. ZOLPIDEM [Suspect]
     Active Substance: ZOLPIDEM TARTRATE
     Indication: Insomnia
     Dosage: 10 MILLIGRAM
     Route: 065
  2. FLUMAZENIL [Suspect]
     Active Substance: FLUMAZENIL
     Indication: Altered state of consciousness
     Dosage: 1 MILLIGRAM
     Route: 042
  3. RIVASTIGMINE [Concomitant]
     Active Substance: RIVASTIGMINE
     Indication: Product used for unknown indication
     Dosage: 12 MILLIGRAM, DAILY
     Route: 065
  4. QUETIAPINE [Concomitant]
     Active Substance: QUETIAPINE
     Indication: Product used for unknown indication
     Dosage: 12 MILLIGRAM, DAILY
     Route: 065

REACTIONS (1)
  - Hepatic encephalopathy [Fatal]
